FAERS Safety Report 17578897 (Version 4)
Quarter: 2020Q3

REPORT INFORMATION
  Report Type: Spontaneous
  Country: US (occurrence: US)
  Receive Date: 20200324
  Receipt Date: 20200813
  Transmission Date: 20201102
  Serious: No
  Sender: FDA-Public Use
  Company Number: US-ACTELION-A-NJ2020-202135

PATIENT
  Age: 67 Year
  Sex: Female

DRUGS (2)
  1. OPSUMIT [Suspect]
     Active Substance: MACITENTAN
     Indication: PULMONARY ARTERIAL HYPERTENSION
     Dosage: 10 MG, QD
     Route: 048
     Dates: start: 20191218
  2. FUROSEMIDE. [Concomitant]
     Active Substance: FUROSEMIDE

REACTIONS (9)
  - Erythema [Unknown]
  - Peripheral swelling [Unknown]
  - Wound infection [Unknown]
  - Infection [Recovering/Resolving]
  - Oedema [Recovering/Resolving]
  - Balance disorder [Unknown]
  - Pain in extremity [Unknown]
  - Wound [Unknown]
  - Fluid retention [Unknown]

NARRATIVE: CASE EVENT DATE: 20200127
